FAERS Safety Report 25104604 (Version 2)
Quarter: 2025Q1

REPORT INFORMATION
  Report Type: Spontaneous
  Country: US (occurrence: US)
  Receive Date: 20250321
  Receipt Date: 20250327
  Transmission Date: 20250408
  Serious: No
  Sender: NOVARTIS
  Company Number: US-002147023-NVSC2025US044665

PATIENT
  Sex: Female

DRUGS (2)
  1. TAFINLAR [Suspect]
     Active Substance: DABRAFENIB MESYLATE
     Indication: Thyroid cancer
     Dosage: UNK (2 TABLETS BY MOUTH TWICE DAILY, TAKE FOR 2 WEEKS ON THEN T WEEK OFF)
     Route: 048
     Dates: start: 202102
  2. MEKINIST [Suspect]
     Active Substance: TRAMETINIB DIMETHYL SULFOXIDE
     Indication: Thyroid cancer
     Dosage: 2 DOSAGE FORM, QD (TAKE FOR 2 WEEKS ON AND THEN 1 WEEK OFF)
     Route: 048
     Dates: start: 202103

REACTIONS (5)
  - Diarrhoea [Unknown]
  - Palpitations [Unknown]
  - Nausea [Unknown]
  - Mental status changes [Unknown]
  - Stress [Unknown]
